FAERS Safety Report 5093487-5 (Version None)
Quarter: 2006Q3

REPORT INFORMATION
  Report Type: 
  Country: None (occurrence: None)
  Receive Date: 20060829
  Receipt Date: 20060815
  Transmission Date: 20061208
  Serious: Yes (Life-Threatening, Hospitalization)
  Sender: FDA-Public Use
  Company Number: 25639

PATIENT
  Age: 56 Year
  Sex: Male

DRUGS (4)
  1. NIACIN [Suspect]
     Indication: SCHIZOPHRENIA
     Dosage: 11000 MG QD PO
     Route: 048
  2. VITAMIN B-12 [Concomitant]
  3. ZINC [Concomitant]
  4. VITAMIN B6 [Concomitant]

REACTIONS (6)
  - ABDOMINAL PAIN [None]
  - BODY TEMPERATURE DECREASED [None]
  - CHEST PAIN [None]
  - DIZZINESS [None]
  - HYPOTENSION [None]
  - INTENTIONAL OVERDOSE [None]
